FAERS Safety Report 5262693-9 (Version None)
Quarter: 2007Q1

REPORT INFORMATION
  Report Type: 
  Country: None (occurrence: None)
  Receive Date: 20070312
  Receipt Date: 20070301
  Transmission Date: 20070707
  Serious: Yes (Hospitalization)
  Sender: FDA-Public Use
  Company Number: JP-MERCK-0703USA00840

PATIENT
  Age: 16 Year
  Sex: Female

DRUGS (45)
  1. ALEVIATIN [Concomitant]
     Indication: CEREBRAL PALSY
     Route: 048
  2. ALEVIATIN [Concomitant]
     Indication: MENTAL RETARDATION SEVERITY UNSPECIFIED
     Route: 048
  3. LEVOMEPROMAZINE MALEATE [Concomitant]
     Indication: CEREBRAL PALSY
     Route: 048
  4. LEVOMEPROMAZINE MALEATE [Concomitant]
     Indication: MENTAL RETARDATION SEVERITY UNSPECIFIED
     Route: 048
  5. EURODIN [Concomitant]
     Indication: CEREBRAL PALSY
     Route: 048
  6. PEPCID [Suspect]
     Indication: HAEMATEMESIS
     Route: 041
     Dates: start: 20070209, end: 20070214
  7. PEPCID [Suspect]
     Indication: DYSPEPSIA
     Route: 041
     Dates: start: 20070209, end: 20070214
  8. DORMICUM (MIDAZOLAM) [Suspect]
     Indication: CONVULSION
     Route: 041
     Dates: start: 20070208, end: 20070211
  9. SOLDEM 3A [Concomitant]
     Route: 041
     Dates: start: 20070126, end: 20070126
  10. PREDONINE [Concomitant]
     Indication: ASTHMA
     Route: 041
     Dates: start: 20070206, end: 20070212
  11. CARBENIN [Concomitant]
     Indication: PNEUMONIA
     Route: 041
     Dates: start: 20070210, end: 20070212
  12. CARBENIN [Concomitant]
     Indication: BRONCHITIS
     Route: 041
     Dates: start: 20070210, end: 20070212
  13. AMBROXOL HYDROCHLORIDE [Concomitant]
     Indication: ASTHMA
     Route: 048
  14. MUCODYNE [Concomitant]
     Indication: ASTHMA
     Route: 048
  15. ONON [Concomitant]
     Indication: ASTHMA
     Route: 048
  16. CELTECT [Concomitant]
     Indication: ASTHMA
     Route: 048
  17. TEGRETOL [Concomitant]
     Indication: CEREBRAL PALSY
     Route: 048
  18. TEGRETOL [Concomitant]
     Indication: MENTAL RETARDATION SEVERITY UNSPECIFIED
     Route: 048
  19. HALOPERIDOL [Concomitant]
     Indication: CEREBRAL PALSY
     Route: 048
  20. HALOPERIDOL [Concomitant]
     Indication: MENTAL RETARDATION SEVERITY UNSPECIFIED
     Route: 048
  21. MEILAX [Concomitant]
     Indication: CEREBRAL PALSY
     Route: 048
  22. MEILAX [Concomitant]
     Indication: MENTAL RETARDATION SEVERITY UNSPECIFIED
     Route: 048
  23. NEULEPTIL [Concomitant]
     Indication: CEREBRAL PALSY
     Route: 048
  24. NEULEPTIL [Concomitant]
     Indication: MENTAL RETARDATION SEVERITY UNSPECIFIED
     Route: 048
  25. EURODIN [Concomitant]
     Indication: MENTAL RETARDATION SEVERITY UNSPECIFIED
     Route: 048
  26. HOKUNALIN [Concomitant]
     Indication: ASTHMA
     Route: 065
     Dates: start: 20070211
  27. CEFMETAZON [Concomitant]
     Indication: COLITIS
     Route: 041
     Dates: start: 20070206, end: 20070208
  28. PENTCILLIN [Concomitant]
     Indication: PNEUMONIA
     Route: 041
     Dates: start: 20070209, end: 20070209
  29. PENTCILLIN [Concomitant]
     Indication: BRONCHITIS
     Route: 041
     Dates: start: 20070209, end: 20070209
  30. VANCOMYCIN HYDROCHLORIDE [Concomitant]
     Indication: COLITIS
     Route: 041
     Dates: start: 20070212, end: 20070213
  31. VANCOMYCIN HYDROCHLORIDE [Concomitant]
     Route: 041
     Dates: start: 20070213, end: 20070219
  32. ONEALFA [Concomitant]
     Indication: CEREBRAL PALSY
     Route: 048
  33. ONEALFA [Concomitant]
     Indication: MENTAL RETARDATION SEVERITY UNSPECIFIED
     Route: 048
  34. CLARITHROMYCIN [Concomitant]
     Indication: ASTHMA
     Route: 048
  35. ALBUMIN TANNATE [Concomitant]
     Indication: CEREBRAL PALSY
     Route: 048
  36. ALBUMIN TANNATE [Concomitant]
     Indication: MENTAL RETARDATION SEVERITY UNSPECIFIED
     Route: 048
  37. ALUMINUM SILICATE [Concomitant]
     Indication: CEREBRAL PALSY
     Route: 048
  38. ALUMINUM SILICATE [Concomitant]
     Indication: MENTAL RETARDATION SEVERITY UNSPECIFIED
     Route: 048
  39. CALCIUM LACTATE [Concomitant]
     Indication: CEREBRAL PALSY
     Route: 048
  40. CALCIUM LACTATE [Concomitant]
     Indication: MENTAL RETARDATION SEVERITY UNSPECIFIED
     Route: 048
  41. INTAL [Concomitant]
     Indication: ASTHMA
  42. LACTASE [Concomitant]
     Indication: COLITIS
     Route: 048
     Dates: start: 20070211
  43. BISOLVON [Concomitant]
     Indication: ASTHMA
  44. LUVOX [Suspect]
     Indication: CEREBRAL PALSY
     Route: 048
  45. LUVOX [Suspect]
     Indication: MENTAL RETARDATION SEVERITY UNSPECIFIED
     Route: 048

REACTIONS (1)
  - DEPRESSED LEVEL OF CONSCIOUSNESS [None]
